APPROVED DRUG PRODUCT: LYNPARZA
Active Ingredient: OLAPARIB
Strength: 50MG
Dosage Form/Route: CAPSULE;ORAL
Application: N206162 | Product #001
Applicant: ASTRAZENECA PHARMACEUTICALS LP
Approved: Dec 19, 2014 | RLD: Yes | RS: No | Type: DISCN

PATENTS:
Patent 8143241 | Expires: Aug 12, 2027
Patent 8859562 | Expires: Aug 4, 2031
Patent 8247416 | Expires: Sep 24, 2028